FAERS Safety Report 9782077 (Version 1)
Quarter: 2013Q4

REPORT INFORMATION
  Report Type: Report from Study
  Country: US (occurrence: US)
  Receive Date: 20131226
  Receipt Date: 20131226
  Transmission Date: 20140711
  Serious: Yes (Hospitalization, Other)
  Sender: FDA-Public Use
  Company Number: US-ROCHE-1324715

PATIENT
  Sex: Female
  Weight: 62.2 kg

DRUGS (1)
  1. ACTEMRA [Suspect]
     Indication: RHEUMATOID ARTHRITIS
     Route: 042
     Dates: start: 201208

REACTIONS (4)
  - Dehydration [Recovered/Resolved]
  - Renal failure [Recovered/Resolved]
  - Rheumatoid arthritis [Unknown]
  - Pain [Unknown]
